FAERS Safety Report 25144997 (Version 1)
Quarter: 2025Q2

REPORT INFORMATION
  Report Type: Spontaneous
  Country: JP (occurrence: JP)
  Receive Date: 20250401
  Receipt Date: 20250401
  Transmission Date: 20250717
  Serious: Yes (Hospitalization, Other)
  Sender: MEITHEAL PHARMACEUTICALS
  Company Number: JP-MEITHEAL-2025MPLIT00111

PATIENT
  Age: 8 Decade
  Sex: Male

DRUGS (14)
  1. CARBOPLATIN [Suspect]
     Active Substance: CARBOPLATIN
     Indication: Idiopathic interstitial pneumonia
     Dosage: TIME CURVE OF 6, ON DAY 1 FIRST CYCLE
     Route: 065
  2. CARBOPLATIN [Suspect]
     Active Substance: CARBOPLATIN
     Dosage: SECOND CYCLE
     Route: 065
  3. PACLITAXEL [Suspect]
     Active Substance: PACLITAXEL
     Indication: Idiopathic interstitial pneumonia
     Dosage: ON DAYS 1, 8, AND 15
     Route: 065
  4. PACLITAXEL [Suspect]
     Active Substance: PACLITAXEL
     Dosage: SECOND CYCLE
     Route: 065
  5. VONOPRAZAN [Suspect]
     Active Substance: VONOPRAZAN
     Indication: Dyspepsia
     Route: 065
  6. VONOPRAZAN [Suspect]
     Active Substance: VONOPRAZAN
     Route: 065
  7. AMLODIPINE [Concomitant]
     Active Substance: AMLODIPINE BESYLATE
     Indication: Product used for unknown indication
     Route: 065
  8. TELMISARTAN [Concomitant]
     Active Substance: TELMISARTAN
     Indication: Product used for unknown indication
     Route: 065
  9. PEMAFIBRATE [Concomitant]
     Active Substance: PEMAFIBRATE
     Indication: Product used for unknown indication
     Route: 065
  10. BISOPROLOL [Concomitant]
     Active Substance: BISOPROLOL
     Indication: Product used for unknown indication
     Route: 065
  11. DISOPYRAMIDE [Concomitant]
     Active Substance: DISOPYRAMIDE
     Indication: Product used for unknown indication
     Route: 065
  12. omega-3-acid-ethyl-esters [Concomitant]
     Indication: Product used for unknown indication
     Dosage: AT BASELINE
     Route: 065
  13. LANSOPRAZOLE [Concomitant]
     Active Substance: LANSOPRAZOLE
     Indication: Product used for unknown indication
     Route: 065
  14. VERAPAMIL [Concomitant]
     Active Substance: VERAPAMIL HYDROCHLORIDE
     Indication: Product used for unknown indication
     Route: 042

REACTIONS (2)
  - Torsade de pointes [Recovered/Resolved]
  - Hypomagnesaemia [Recovered/Resolved]
